FAERS Safety Report 6376377-7 (Version None)
Quarter: 2009Q3

REPORT INFORMATION
  Report Type: 
  Country: None (occurrence: None)
  Receive Date: 20090925
  Receipt Date: 20090916
  Transmission Date: 20100115
  Serious: Yes (Hospitalization)
  Sender: FDA-Public Use
  Company Number: DE-WYE-H11108409

PATIENT
  Age: 81 Year
  Sex: Female

DRUGS (16)
  1. PANTOZOL [Interacting]
     Indication: PROPHYLAXIS AGAINST GASTROINTESTINAL ULCER
     Route: 048
     Dates: start: 20080820, end: 20080101
  2. COTRIM [Suspect]
     Indication: URINARY TRACT INFECTION
     Route: 048
     Dates: start: 20080824, end: 20080827
  3. VOLTAREN [Interacting]
     Indication: ARTHRITIS
     Route: 048
     Dates: start: 20080501, end: 20080601
  4. ACETYLSALICYLIC ACID [Interacting]
     Indication: CORONARY ARTERY DISEASE
     Route: 048
     Dates: start: 19950101, end: 20080909
  5. ACERBON ^ICI^ [Concomitant]
     Indication: HYPERTENSION
     Dosage: UNKNOWN
     Route: 048
  6. ARELIX [Concomitant]
     Indication: HYPERTENSION
     Dosage: UNKNOWN
     Route: 048
  7. CALCILAC [Concomitant]
     Indication: OSTEOPOROSIS
     Route: 048
     Dates: start: 20080601
  8. FOSAVANCE [Concomitant]
     Indication: OSTEOPOROSIS
     Route: 048
     Dates: start: 20080601
  9. FOSINORM [Concomitant]
     Indication: HYPERTENSION
     Route: 048
     Dates: start: 20080501
  10. MOXONIDINE [Concomitant]
     Indication: HYPERTENSION
     Route: 048
     Dates: start: 19900101
  11. OXYGESIC [Concomitant]
     Indication: PAIN
     Route: 048
     Dates: start: 20080601
  12. ACETAMINOPHEN [Concomitant]
     Indication: PAIN
     Route: 048
     Dates: start: 20080601, end: 20080918
  13. PRAVASTATIN [Concomitant]
     Indication: DYSLIPIDAEMIA
     Route: 048
     Dates: start: 20020101
  14. PREDNISOLONE [Concomitant]
     Indication: ARTHRITIS
     Route: 048
     Dates: start: 20080501, end: 20080601
  15. VERAPAMIL [Concomitant]
     Indication: CORONARY ARTERY DISEASE
     Route: 048
     Dates: start: 19900101
  16. CIPROFLAXACIN [Suspect]
     Indication: URINARY TRACT INFECTION
     Route: 048
     Dates: start: 20080820, end: 20080823

REACTIONS (2)
  - DRUG INTERACTION [None]
  - PSEUDOMEMBRANOUS COLITIS [None]
